FAERS Safety Report 5602925-8 (Version None)
Quarter: 2008Q1

REPORT INFORMATION
  Report Type: 
  Country: None (occurrence: None)
  Receive Date: 20080125
  Receipt Date: 20080116
  Transmission Date: 20080703
  Serious: Yes (Other)
  Sender: FDA-Public Use
  Company Number: US-ABBOTT-08P-163-0433661-00

PATIENT
  Sex: Female

DRUGS (4)
  1. NIASPAN [Suspect]
     Indication: BLOOD CHOLESTEROL INCREASED
     Route: 048
     Dates: start: 20060101, end: 20070601
  2. NIASPAN [Suspect]
     Dosage: COATED
     Route: 048
     Dates: start: 20070601
  3. NIASPAN [Suspect]
     Route: 048
     Dates: start: 20071201
  4. TRITREMARAN [Concomitant]
     Indication: HYPERTENSION
     Route: 048

REACTIONS (2)
  - CATARACT [None]
  - FLUSHING [None]
